FAERS Safety Report 5036451-4 (Version None)
Quarter: 2006Q2

REPORT INFORMATION
  Report Type: 
  Country: None (occurrence: None)
  Receive Date: 20060623
  Receipt Date: 20060620
  Transmission Date: 20061013
  Serious: Yes (Death, Hospitalization)
  Sender: FDA-Public Use
  Company Number: DEWYE757321JUN06

PATIENT
  Age: 80 Year
  Sex: Male

DRUGS (16)
  1. RAPAMUNE [Suspect]
     Indication: PROPHYLAXIS AGAINST TRANSPLANT REJECTION
     Dosage: 1 MG
     Route: 048
     Dates: start: 20031126, end: 20060108
  2. MYCOPHENOLIC ACID [Concomitant]
  3. RAMIPRIL [Concomitant]
  4. CYNT (MOXONIDINE) [Concomitant]
  5. BISOPROLOL FUMARATE [Concomitant]
  6. TOREM (TORASEMIDE) [Concomitant]
  7. COAPROVEL (IRBESARTAN/HYDROCHLOROTHIAZIDE) [Concomitant]
  8. ADVERSUTEN (PRAZOSIN HYDROCHLORIDE) [Concomitant]
  9. TAMSULOSIN HCL [Concomitant]
  10. ACETYLSALICYLIC ACID SRT [Concomitant]
  11. LOCOL (FLUVASTATIN SODIUM) [Concomitant]
  12. ALLOPURINOL [Concomitant]
  13. SODIUM BICARBONATE IN PLASTIC CONTAINER [Concomitant]
  14. OMEPRAZOLE [Concomitant]
  15. AUGMENTIN '125' [Concomitant]
  16. ACETYLCYSTEINE [Concomitant]

REACTIONS (7)
  - CHOLECYSTITIS [None]
  - LUNG INFILTRATION [None]
  - MYOCARDIAL ISCHAEMIA [None]
  - PNEUMONIA [None]
  - SEPSIS [None]
  - SUDDEN CARDIAC DEATH [None]
  - URINARY TRACT DISORDER [None]
